FAERS Safety Report 7816639-7 (Version None)
Quarter: 2011Q4

REPORT INFORMATION
  Report Type: 
  Country: None (occurrence: None)
  Receive Date: 20111017
  Receipt Date: 20110929
  Transmission Date: 20120403
  Serious: Yes (Disabling, Other)
  Sender: FDA-Public Use
  Company Number: BR-US-EMD SERONO, INC.-7087881

PATIENT
  Sex: Female

DRUGS (4)
  1. CLORANA [Concomitant]
  2. INSULIN [Concomitant]
  3. REBIF [Suspect]
     Indication: RELAPSING-REMITTING MULTIPLE SCLEROSIS
     Dates: start: 20100621
  4. CAPTOPRIL [Concomitant]

REACTIONS (6)
  - ASTHENIA [None]
  - SKIN NECROSIS [None]
  - ANAL SPHINCTER ATONY [None]
  - DEPRESSION [None]
  - CONFUSIONAL STATE [None]
  - CENTRAL NERVOUS SYSTEM LESION [None]
